FAERS Safety Report 17016607 (Version 4)
Quarter: 2020Q1

REPORT INFORMATION
  Report Type: Spontaneous
  Country: US (occurrence: US)
  Receive Date: 20191111
  Receipt Date: 20200117
  Transmission Date: 20200409
  Serious: Yes (Other)
  Sender: FDA-Public Use
  Company Number: US-PFIZER INC-2018472170

PATIENT
  Age: 64 Year
  Sex: Female
  Weight: 79 kg

DRUGS (36)
  1. LYRICA [Suspect]
     Active Substance: PREGABALIN
     Indication: FIBROMYALGIA
     Dosage: 50 MG, 1X/DAY ( 25MG, 2 CAPSULES BY MOUTH AT NIGHT)
     Route: 048
  2. SORIATANE [Concomitant]
     Active Substance: ACITRETIN
     Dosage: 25 MG, 1X/DAY (WITH MEAL)
     Route: 048
  3. BETAMETHASONE DIPROPIONATE. [Concomitant]
     Active Substance: BETAMETHASONE DIPROPIONATE
     Dosage: UNK UNK, ALTERNATE DAY (TWICE DAILY EVERY OTHER DAY)
  4. EVOXAC [Concomitant]
     Active Substance: CEVIMELINE HYDROCHLORIDE
     Dosage: 30 MG, 3X/DAY
     Route: 048
  5. LASIX [Concomitant]
     Active Substance: FUROSEMIDE
     Dosage: 20 MG, 1X/DAY
     Route: 048
  6. TRIAMCINOLONE [Concomitant]
     Active Substance: TRIAMCINOLONE
     Dosage: UNK [THEN DECREASE TO WEEKENDS ONLY FOR 4 WKS. REPEAT AS NEEDED]
  7. LYRICA [Suspect]
     Active Substance: PREGABALIN
     Indication: NEUROPATHY PERIPHERAL
     Dosage: 50 MG, 1X/DAY (AT BEDTIME)
     Route: 048
  8. NORVASC [Concomitant]
     Active Substance: AMLODIPINE BESYLATE
     Dosage: 10 MG, 1X/DAY
     Route: 048
  9. TEMOVATE [Concomitant]
     Active Substance: CLOBETASOL PROPIONATE
     Dosage: UNK UNK, 2X/DAY
  10. CYMBALTA [Concomitant]
     Active Substance: DULOXETINE HYDROCHLORIDE
     Dosage: 20 MG, 1X/DAY
     Route: 048
  11. TAZAROTENE. [Concomitant]
     Active Substance: TAZAROTENE
     Dosage: UNK, 1X/DAY [APPLY FROM ANKLES TO TOES ONCE DAILY AT NIGHT BEFORE BED]
  12. ULTRAVATE [ULOBETASOL PROPIONATE] [Concomitant]
     Dosage: UNK [APPLY TO AFFECTED AREAS ON PALMS AND SOLES 2 TIMES DAILY FOR 2 WKS, THN 2 WKS OFF. REPEAT]
  13. SYNTHROID [Concomitant]
     Active Substance: LEVOTHYROXINE SODIUM
     Dosage: 100 UG, 1X/DAY [TAKE 1 TABLET (100 MCG) BY MOUTH ONCE DAILY, 30 MIN PRIOR TO MEAL]
     Route: 048
  14. LIDODERM [Concomitant]
     Active Substance: LIDOCAINE
     Dosage: UNK [PLACE 1 PATCH ON THE SKIN EVERY 24 HOURS. LEAVE ON SKIN FOR UP TO 12 HOURS WITHIN A24 HOUR PER]
     Route: 061
  15. CARMOL [UREA] [Concomitant]
     Dosage: UNK UNK, AS NEEDED [TWO TIMES DAILY AS NEEDED FOR DRY SKIN. WORKS BEST AFTER SHOWERING]
  16. ACTIGALL [Concomitant]
     Active Substance: URSODIOL
     Dosage: 300 MG, 3X/DAY
     Route: 048
  17. COZAAR [Concomitant]
     Active Substance: LOSARTAN POTASSIUM
     Dosage: 100 MG, 1X/DAY
     Route: 048
  18. PRILOSEC [Concomitant]
     Active Substance: OMEPRAZOLE MAGNESIUM
     Dosage: 40 MG, 1X/DAY [TAKE 1 CAPSULE (40 MG) BY MOUTH ONCE DAILY, 30 MIN PRIOR TO MEAL]
     Route: 048
  19. ZOFRAN [Concomitant]
     Active Substance: ONDANSETRON HYDROCHLORIDE
     Indication: NAUSEA
     Dosage: UNK [TAKE 1-2 TABLETS (4-8 MG) BY MOUTH EVERY EIGHT HOURS AS NEEDED FOR NAUSEA]
     Route: 048
  20. RETIN-A [Concomitant]
     Active Substance: TRETINOIN
     Dosage: UNK, 1X/DAY [APPLY TO THE AFFECTED AREA AT BEDTIME (FEET/HANDS)]
  21. KENALOG [Concomitant]
     Active Substance: TRIAMCINOLONE ACETONIDE
     Indication: SKIN IRRITATION
     Dosage: UNK UNK, AS NEEDED [APPLY TO THE LIPS TWICE DAILY AS NEEDED FOR SKIN IRRITATION]
  22. TRIAMCINOLONE [Concomitant]
     Active Substance: TRIAMCINOLONE
     Dosage: UNK [APPLY TO AFFECTED AREAS ON ARMS/LEGS/TRUNK 2 TIMES DAILY FOR UP TO 2 WEEKS]
  23. CLEOCIN [CLINDAMYCIN HYDROCHLORIDE] [Concomitant]
     Dosage: UNK
  24. LOTRISONE [Concomitant]
     Active Substance: BETAMETHASONE DIPROPIONATE\CLOTRIMAZOLE
     Dosage: UNK, AS NEEDED
  25. LIDEX [Concomitant]
     Active Substance: FLUOCINONIDE
     Dosage: UNK, AS NEEDED (2 TIMES DAILY FOR UP TO 2 WKS, THEN DECREASE TO WEEKENDS ONLY FOR 4 WKS)
  26. FLONASE [Concomitant]
     Active Substance: FLUTICASONE PROPIONATE
     Dosage: 2 GTT, 1X/DAY (2 SPRAY IN EACH NOSTRIL)
  27. NIZORAL [Concomitant]
     Active Substance: KETOCONAZOLE
     Dosage: UNK, AS NEEDED [APPLY TO SCALP, THEN SHAMPOO ONCE DAILY AS NEEDED]
  28. PROTOPIC [Concomitant]
     Active Substance: TACROLIMUS
     Dosage: UNK UNK, AS NEEDED [A SMALL AMOUNT A SMALL AMOUNT TO AFFECTED AREA TWICE A DAY AS DIRECTED]
  29. LYRICA [Suspect]
     Active Substance: PREGABALIN
     Indication: SCIATICA
     Dosage: 75 MG, DAILY (TAKE 3 CAPSULES (75 MG) BY MOUTH AT BEDTIME. TAKE 3 CAPSULES DAILY AT BEDTIME)
     Route: 048
     Dates: start: 20190603
  30. ROCALTROL [Concomitant]
     Active Substance: CALCITRIOL
     Dosage: 0.25 UG, 1X/DAY
     Route: 048
  31. APRESOLINE HYDROCHLORIDE [Concomitant]
     Active Substance: HYDRALAZINE HYDROCHLORIDE
     Dosage: 25 MG, 2X/DAY
     Route: 048
  32. LYRICA [Suspect]
     Active Substance: PREGABALIN
     Dosage: 75 MG, 1X/DAY (QHS [EVERY BEDTIME])
     Route: 048
  33. CLEOCIN T [Concomitant]
     Active Substance: CLINDAMYCIN PHOSPHATE
     Dosage: UNK UNK, DAILY (APPLY 2-4 TIMES DAILY TO ALL AREAS AFFECTED)
  34. DESOWEN [Concomitant]
     Active Substance: DESONIDE
     Dosage: UNK, AS NEEDED (TWICE DAILY AS NEEDED)
  35. PLAQUENIL [Concomitant]
     Active Substance: HYDROXYCHLOROQUINE SULFATE
     Dosage: 300 MG, 1X/DAY [TAKE 1.5 TABLETS (300 MG) BY MOUTH ONCE DAILY]
     Route: 048
  36. PREVIDENT 5000 PLUS SPEARMINT [Concomitant]
     Active Substance: SODIUM FLUORIDE
     Dosage: UNK UNK, AS NEEDED [USE AS DIRECTED EVERY MORNING]
     Route: 004

REACTIONS (8)
  - Sciatica [Unknown]
  - Balance disorder [Recovered/Resolved]
  - Fall [Unknown]
  - Nerve injury [Unknown]
  - Pain [Unknown]
  - Fear of falling [Unknown]
  - Aphasia [Unknown]
  - Fibromyalgia [Unknown]
